FAERS Safety Report 22243707 (Version 1)
Quarter: 2023Q2

REPORT INFORMATION
  Report Type: Spontaneous
  Country: CA (occurrence: CA)
  Receive Date: 20230424
  Receipt Date: 20230424
  Transmission Date: 20230721
  Serious: Yes (Other)
  Sender: FDA-Public Use
  Company Number: CA-JNJFOC-20230449417

PATIENT
  Age: 31 Year
  Sex: Male
  Weight: 72 kg

DRUGS (11)
  1. REMICADE [Suspect]
     Active Substance: INFLIXIMAB
     Indication: Colitis ulcerative
     Route: 041
  2. INFLIXIMAB [Suspect]
     Active Substance: INFLIXIMAB
     Indication: Colitis ulcerative
     Route: 042
  3. INFLIXIMAB [Suspect]
     Active Substance: INFLIXIMAB
     Route: 042
  4. CALCIUM CARBONATE [Concomitant]
     Active Substance: CALCIUM CARBONATE
  5. FLUVOXAMINE [Concomitant]
     Active Substance: FLUVOXAMINE
  6. FUROSEMIDE [Concomitant]
     Active Substance: FUROSEMIDE
  7. METOCLOPRAMIDE [Concomitant]
     Active Substance: METOCLOPRAMIDE
  8. MESALAMINE [Concomitant]
     Active Substance: MESALAMINE
  9. DOCONEXENT\ICOSAPENT [Concomitant]
     Active Substance: DOCONEXENT\ICOSAPENT
     Route: 048
  10. RISPERIDONE [Concomitant]
     Active Substance: RISPERIDONE
  11. VITAMIN D3 [Concomitant]
     Active Substance: CHOLECALCIFEROL
     Route: 048

REACTIONS (4)
  - Oropharyngeal pain [Unknown]
  - Malaise [Unknown]
  - Peritonsillar abscess [Unknown]
  - Pharyngitis streptococcal [Unknown]
